FAERS Safety Report 5218697-5 (Version None)
Quarter: 2007Q1

REPORT INFORMATION
  Report Type: 
  Country: None (occurrence: None)
  Receive Date: 20070122
  Receipt Date: 20070109
  Transmission Date: 20070707
  Serious: Yes (Other)
  Sender: FDA-Public Use
  Company Number: DSA_61368_2007

PATIENT
  Age: 21 Year
  Sex: Female
  Weight: 81.6475 kg

DRUGS (5)
  1. DIASTAT ACUDIAL [Suspect]
     Indication: CONVULSION
     Dosage: 20 MG PRN RC
  2. FACTIVE [Suspect]
  3. TOPAMAX [Concomitant]
  4. KEPRA [Concomitant]
  5. TEGRETOL [Concomitant]

REACTIONS (6)
  - CONVULSION [None]
  - DEVICE BREAKAGE [None]
  - DRUG ADMINISTRATION ERROR [None]
  - PAIN IN EXTREMITY [None]
  - PHARMACEUTICAL PRODUCT COMPLAINT [None]
  - THERAPEUTIC REACTION TIME DECREASED [None]
